FAERS Safety Report 21372952 (Version 1)
Quarter: 2022Q3

REPORT INFORMATION
  Report Type: Report from Study
  Country: US (occurrence: US)
  Receive Date: 20220924
  Receipt Date: 20220924
  Transmission Date: 20221027
  Serious: Yes (Other)
  Sender: FDA-Public Use
  Company Number: US-ABBVIE-4129190

PATIENT

DRUGS (4)
  1. SKYRIZI [Suspect]
     Active Substance: RISANKIZUMAB-RZAA
     Indication: Psoriasis
     Route: 058
  2. Pfizer/BioNtech [Concomitant]
     Indication: COVID-19 immunisation
     Dosage: FIRST DOSE??ONCE
     Route: 030
     Dates: start: 20210111, end: 20210111
  3. Pfizer/BioNtech [Concomitant]
     Indication: COVID-19 immunisation
     Dosage: BOOSTER DOSE?ONCE
     Route: 030
     Dates: start: 20220820, end: 20220820
  4. Pfizer/BioNtech [Concomitant]
     Indication: COVID-19 immunisation
     Dosage: SECOND DOSE?ONCE
     Route: 030
     Dates: start: 20211228, end: 20211228

REACTIONS (1)
  - Intestinal perforation [Unknown]

NARRATIVE: CASE EVENT DATE: 20220101
